FAERS Safety Report 7688023-0 (Version None)
Quarter: 2011Q3

REPORT INFORMATION
  Report Type: 
  Country: None (occurrence: None)
  Receive Date: 20110817
  Receipt Date: 20110812
  Transmission Date: 20111222
  Serious: No
  Sender: FDA-Public Use
  Company Number: US-PFIZER INC-2011186326

PATIENT
  Sex: Male

DRUGS (11)
  1. METOPROLOL [Concomitant]
     Dosage: 50 MG, UNK
  2. TERAZOSIN [Concomitant]
     Dosage: 1 MG, UNK
  3. FISH OIL [Concomitant]
     Dosage: UNK
  4. CENTRUM SILVER [Concomitant]
     Dosage: UNK
  5. MAGNESIUM [Concomitant]
     Dosage: UNK
  6. ENALAPRIL [Concomitant]
     Dosage: 2.5 MG, UNK
  7. OXYCONTIN [Concomitant]
     Dosage: 10 MG, UNK
  8. ONDANSETRON [Concomitant]
     Dosage: 8 MG, UNK
  9. ACETYLSALICYLIC ACID [Concomitant]
     Dosage: 81 MG, UNK
  10. SUTENT [Suspect]
     Indication: RENAL CANCER
     Dosage: 25 MG, DAILY
     Route: 048
     Dates: start: 20110503, end: 20110101
  11. CRESTOR [Concomitant]
     Dosage: 10 MG, UNK

REACTIONS (2)
  - DISEASE PROGRESSION [None]
  - RENAL CANCER [None]
